FAERS Safety Report 8546328-5 (Version None)
Quarter: 2012Q3

REPORT INFORMATION
  Report Type: 
  Country: None (occurrence: None)
  Receive Date: 20120727
  Receipt Date: 20111215
  Transmission Date: 20120928
  Serious: No
  Sender: FDA-Public Use
  Company Number: US-ASTRAZENECA-2011SE76162

PATIENT
  Age: 55 Year
  Sex: Male

DRUGS (4)
  1. SEROQUEL [Suspect]
     Route: 048
  2. CRESTOR [Concomitant]
  3. TOPROL-XL [Concomitant]
  4. NEXIUM [Concomitant]

REACTIONS (2)
  - ANXIETY [None]
  - DRUG DOSE OMISSION [None]
